FAERS Safety Report 13234088 (Version 1)
Quarter: 2017Q1

REPORT INFORMATION
  Report Type: Spontaneous
  Country: US (occurrence: US)
  Receive Date: 20170215
  Receipt Date: 20170215
  Transmission Date: 20170428
  Serious: No
  Sender: FDA-Public Use
  Company Number: None

PATIENT

DRUGS (2)
  1. LEVEMIR [Suspect]
     Active Substance: INSULIN DETEMIR
  2. INSULIN U-500 SYRINGES [Suspect]
     Active Substance: DEVICE
     Dosage: TYPE - SYRINGES

REACTIONS (3)
  - Underdose [None]
  - Syringe issue [None]
  - Wrong technique in product usage process [None]
